FAERS Safety Report 4627304-1 (Version None)
Quarter: 2005Q2

REPORT INFORMATION
  Report Type: 
  Country: None (occurrence: None)
  Receive Date: 20050405
  Receipt Date: 20050401
  Transmission Date: 20051028
  Serious: No
  Sender: FDA-Public Use
  Company Number: FR-BOEHRINGER INGELHEIM PHARMACEUTICALS, INC.-2005-BP-05396RO

PATIENT

DRUGS (7)
  1. METHOTREXATE [Suspect]
     Indication: RHEUMATOID ARTHRITIS
     Route: 048
  2. METHOTREXATE [Suspect]
     Indication: TAKAYASU'S ARTERITIS
  3. METHOTREXATE [Suspect]
     Indication: PSORIATIC ARTHROPATHY
  4. METHOTREXATE [Suspect]
     Indication: DERMATOMYOSITIS
  5. METHOTREXATE [Suspect]
     Indication: ANKYLOSING SPONDYLITIS
  6. NONSTEROIDAL ANTIINFLAMATORIES [Concomitant]
  7. CORTICOSTEROIDS [Concomitant]

REACTIONS (4)
  - ABORTION INDUCED [None]
  - ABORTION SPONTANEOUS [None]
  - DRUG EXPOSURE DURING PREGNANCY [None]
  - PREMATURE LABOUR [None]
